FAERS Safety Report 7717326-6 (Version None)
Quarter: 2011Q3

REPORT INFORMATION
  Report Type: 
  Country: None (occurrence: None)
  Receive Date: 20110826
  Receipt Date: 20110826
  Transmission Date: 20111222
  Serious: Yes (Other)
  Sender: FDA-Public Use
  Company Number: None

PATIENT
  Sex: Female
  Weight: 70.9426 kg

DRUGS (1)
  1. ALPRAZOLAM [Suspect]
     Indication: PANIC DISORDER WITH AGORAPHOBIA
     Dosage: 0.5 MG 2 AT H.S AND 1 UP TO T.I.D PRN P.O
     Route: 048
     Dates: start: 20110716, end: 20110725

REACTIONS (4)
  - TREMOR [None]
  - ANXIETY [None]
  - MUSCLE TIGHTNESS [None]
  - FEELING JITTERY [None]
